FAERS Safety Report 8777660 (Version 1)
Quarter: 2012Q4

REPORT INFORMATION
  Report Type: 
  Country: US (occurrence: US)
  Receive Date: 20120905
  Receipt Date: 20120905
  Transmission Date: 20130627
  Serious: Yes (Hospitalization)
  Sender: FDA-Public Use
  Company Number: US-ELI_LILLY_AND_COMPANY-US201208009220

PATIENT
  Sex: Female

DRUGS (6)
  1. ZYPREXA [Suspect]
     Indication: BIPOLAR I DISORDER
     Dosage: 40 mg, UNK
  2. ZYPREXA [Suspect]
     Dosage: 20 mg, UNK
  3. ZYPREXA [Suspect]
     Dosage: 5 mg, UNK
  4. ZYPREXA [Suspect]
     Dosage: 30 mg, qd
  5. DEPAKOTE [Concomitant]
     Dosage: 1000 mg, UNK
  6. LITHIUM [Concomitant]

REACTIONS (11)
  - Hospitalisation [Unknown]
  - Mania [Unknown]
  - Hallucination [Recovering/Resolving]
  - Delusion [Recovering/Resolving]
  - Prescribed overdose [Unknown]
  - Sedation [Not Recovered/Not Resolved]
  - Somnolence [Not Recovered/Not Resolved]
  - Weight increased [Unknown]
  - Alopecia [Unknown]
  - Toxicity to various agents [Unknown]
  - Benign neoplasm of thyroid gland [Unknown]
